FAERS Safety Report 9417482 (Version 1)
Quarter: 2013Q3

REPORT INFORMATION
  Report Type: Spontaneous
  Country: US (occurrence: None)
  Receive Date: 20130722
  Receipt Date: 20130722
  Transmission Date: 20140515
  Serious: No
  Sender: FDA-Public Use
  Company Number: None

PATIENT
  Age: 47 Year
  Sex: Male
  Weight: 83.92 kg

DRUGS (1)
  1. ATORVASTATIN [Suspect]
     Indication: HYPOCHOLESTEROLAEMIA
     Dosage: 10 MG, OD, PO
     Route: 048
     Dates: start: 20130715, end: 20130717

REACTIONS (2)
  - Myalgia [None]
  - Muscle spasms [None]
